FAERS Safety Report 13408582 (Version 4)
Quarter: 2022Q3

REPORT INFORMATION
  Report Type: Spontaneous
  Country: US (occurrence: US)
  Receive Date: 20170406
  Receipt Date: 20220926
  Transmission Date: 20221026
  Serious: No
  Sender: FDA-Public Use
  Company Number: US-JNJFOC-20170223660

PATIENT
  Sex: Male

DRUGS (6)
  1. RISPERDAL [Suspect]
     Active Substance: RISPERIDONE
     Indication: Bipolar disorder
     Route: 048
     Dates: start: 20040730, end: 20040824
  2. RISPERDAL [Suspect]
     Active Substance: RISPERIDONE
     Indication: Oppositional defiant disorder
     Route: 048
     Dates: start: 20041026, end: 20050126
  3. RISPERDAL [Suspect]
     Active Substance: RISPERIDONE
     Indication: Attention deficit hyperactivity disorder
     Dosage: VARYING DOSE OF 1,4 AND 5
     Route: 048
     Dates: start: 20050411, end: 20050909
  4. RISPERDAL [Suspect]
     Active Substance: RISPERIDONE
     Indication: Schizophrenia
     Route: 048
     Dates: start: 20060126
  5. RISPERDAL [Suspect]
     Active Substance: RISPERIDONE
     Dosage: THE PATIENT WAS ON RISPERIDONE WITH VARYING DOSE 2 AND 3 MG  AND 4 MG PER ORAL
     Route: 048
  6. INVEGA [Suspect]
     Active Substance: PALIPERIDONE
     Indication: Mental disorder
     Route: 048
     Dates: start: 2013, end: 2016

REACTIONS (2)
  - Emotional distress [Unknown]
  - Gynaecomastia [Unknown]
